FAERS Safety Report 16264029 (Version 3)
Quarter: 2023Q1

REPORT INFORMATION
  Report Type: Report from Study
  Country: US (occurrence: None)
  Receive Date: 20190502
  Receipt Date: 20230109
  Transmission Date: 20230418
  Serious: Yes (Other)
  Sender: FDA-Public Use
  Company Number: US-ROCHE-2308562

PATIENT
  Age: 64 Year
  Sex: Female
  Weight: 86.1 kg

DRUGS (4)
  1. ATEZOLIZUMAB [Suspect]
     Active Substance: ATEZOLIZUMAB
     Indication: Adenocarcinoma of colon
     Dosage: ON DAY 1,840MG PER CYCLE - RECEIVED CYCLE 1 THRU CYCLE 10 ,LAST ADMINISTERED?DATE:11-SEP-2018
     Route: 041
     Dates: start: 20180423
  2. FLUOROURACIL [Suspect]
     Active Substance: FLUOROURACIL
     Indication: Adenocarcinoma of colon
     Dosage: LAST ADMINISTERED DATE:05-OCT-2018, ONGOING:UNKNOWN
     Route: 042
     Dates: start: 20180423
  3. LEUCOVORIN CALCIUM [Suspect]
     Active Substance: LEUCOVORIN CALCIUM
     Indication: Adenocarcinoma of colon
     Dosage: LAST ADMINISTERED DATE:03-OCT-2018,TOTAL DOSE FOR CYCLE 11
     Route: 042
     Dates: start: 20180423
  4. OXALIPLATIN [Suspect]
     Active Substance: OXALIPLATIN
     Indication: Adenocarcinoma of colon
     Dosage: TOTAL DOSE FOR CYCLE 11,LAST ADMINISTERED DATE:03-OCT-2018
     Route: 042
     Dates: start: 20180423

REACTIONS (2)
  - Embolism [Not Recovered/Not Resolved]
  - Urinary tract infection [Not Recovered/Not Resolved]

NARRATIVE: CASE EVENT DATE: 20181007
